FAERS Safety Report 11218226 (Version 1)
Quarter: 2015Q2

REPORT INFORMATION
  Report Type: Spontaneous
  Country: US (occurrence: US)
  Receive Date: 20150625
  Receipt Date: 20150625
  Transmission Date: 20150821
  Serious: Yes (Hospitalization)
  Sender: FDA-Public Use
  Company Number: US-LPDUSPRD-20150471

PATIENT
  Age: 24 Year
  Sex: Female

DRUGS (6)
  1. CLONZAPINE [Suspect]
     Active Substance: CLOZAPINE
     Dosage: 100 MG DAILY
     Route: 065
  2. LITHIUM. [Suspect]
     Active Substance: LITHIUM
     Dosage: DOSE NOT PROVIDED
     Route: 065
  3. HALOPERDOL [Concomitant]
     Dosage: DOSE NOT PROVIDED
     Route: 051
  4. PALIPERIDONE [Suspect]
     Active Substance: PALIPERIDONE
     Dosage: DOSE NOT PROVIDED
     Route: 051
  5. VALPROATE [Concomitant]
     Active Substance: VALPROATE SODIUM
     Dosage: DOSE NOT PROVIDED
     Route: 051
  6. OLANZAPINE. [Suspect]
     Active Substance: OLANZAPINE
     Dosage: DOSE NOT PROVIDED
     Route: 065

REACTIONS (2)
  - Psychotic disorder [Recovered/Resolved]
  - Neuroleptic malignant syndrome [Recovered/Resolved]
